FAERS Safety Report 7113453-5 (Version None)
Quarter: 2010Q4

REPORT INFORMATION
  Report Type: 
  Country: None (occurrence: None)
  Receive Date: 20101119
  Receipt Date: 20101103
  Transmission Date: 20110411
  Serious: Yes (Other)
  Sender: FDA-Public Use
  Company Number: US-PFIZER INC-2010148321

PATIENT
  Age: 60 Year
  Sex: Female
  Weight: 57.59 kg

DRUGS (2)
  1. ADVIL [Suspect]
     Indication: PYREXIA
     Dosage: 1 DF, 3X/DAY
     Route: 048
  2. ADVIL [Suspect]
     Indication: PAIN

REACTIONS (1)
  - HAEMOPTYSIS [None]
